FAERS Safety Report 12527715 (Version 1)
Quarter: 2016Q3

REPORT INFORMATION
  Report Type: Spontaneous
  Country: GB (occurrence: GB)
  Receive Date: 20160705
  Receipt Date: 20160705
  Transmission Date: 20161109
  Serious: Yes (Hospitalization)
  Sender: FDA-Public Use
  Company Number: GB-PFIZER INC-1950866

PATIENT
  Age: 30 Year
  Sex: Female

DRUGS (14)
  1. DOCETAXEL. [Suspect]
     Active Substance: DOCETAXEL
     Indication: HER-2 POSITIVE BREAST CANCER
     Dosage: 150 MG, CYCLIC: FREQ: 1 WEEK; INTERVAL: 3.
     Route: 042
     Dates: start: 20130605
  2. GLYCEROL [Concomitant]
     Active Substance: GLYCERIN
     Indication: PRODUCT USED FOR UNKNOWN INDICATION
     Dosage: UNK
     Route: 054
  3. HYPROMELLOSE [Concomitant]
     Active Substance: HYPROMELLOSES
     Indication: PRODUCT USED FOR UNKNOWN INDICATION
     Dosage: UNK
  4. DEXAMETHASONE. [Concomitant]
     Active Substance: DEXAMETHASONE
     Indication: PREMEDICATION
     Dosage: 8 MG, UNK
     Dates: start: 20130604, end: 20130606
  5. PERTUZUMAB [Concomitant]
     Active Substance: PERTUZUMAB
     Indication: HER-2 POSITIVE BREAST CANCER
     Dosage: 420 MG, FREQ: 1 WEEK; INTERVAL: 3.
     Route: 042
  6. PERTUZUMAB [Concomitant]
     Active Substance: PERTUZUMAB
     Dosage: 8 MG/KG, FREQ: 1 WEEK; INTERVAL: 3.
     Route: 042
     Dates: start: 20130605, end: 20130605
  7. TRASTUZUMAB [Concomitant]
     Active Substance: TRASTUZUMAB
     Dosage: 420 UNK, FREQ: 1 WEEK; INTERVAL: 3.
     Route: 042
     Dates: start: 20130605
  8. TRASTUZUMAB [Concomitant]
     Active Substance: TRASTUZUMAB
     Indication: HER-2 POSITIVE BREAST CANCER
     Dosage: 840 MG, FREQ:1 TOTAL; INTERVAL: 1.
     Route: 042
     Dates: start: 20130605, end: 20130605
  9. DEXAMETHASONE. [Concomitant]
     Active Substance: DEXAMETHASONE
     Dosage: UNK
     Dates: start: 20130625, end: 20130627
  10. DOCETAXEL. [Suspect]
     Active Substance: DOCETAXEL
     Dosage: 150 MG, FREQ: 1WEEK; INTERVAL: 3.
     Route: 065
     Dates: start: 20130828
  11. METOCLOPRAMIDE. [Concomitant]
     Active Substance: METOCLOPRAMIDE
     Indication: PRODUCT USED FOR UNKNOWN INDICATION
     Dosage: 10 MG, UNK
     Dates: start: 20130605, end: 20130612
  12. METOCLOPRAMIDE. [Concomitant]
     Active Substance: METOCLOPRAMIDE
     Dosage: 10 MG, UNK
     Dates: start: 20130626, end: 20130703
  13. ONDANSETRON [Concomitant]
     Active Substance: ONDANSETRON
     Indication: PRODUCT USED FOR UNKNOWN INDICATION
     Dosage: 8 MG, UNK
     Dates: start: 20130626, end: 20130627
  14. PERTUZUMAB [Concomitant]
     Active Substance: PERTUZUMAB
     Dosage: 840 MG, FREQ: 1 TOTAL; INTERVAL: 1.
     Route: 042
     Dates: start: 20130605, end: 20130605

REACTIONS (2)
  - Neutropenic sepsis [Recovered/Resolved]
  - Febrile neutropenia [Recovered/Resolved]

NARRATIVE: CASE EVENT DATE: 20130614
